FAERS Safety Report 9263611 (Version 1)
Quarter: 2013Q2

REPORT INFORMATION
  Report Type: Spontaneous
  Country: US (occurrence: None)
  Receive Date: 20130429
  Receipt Date: 20130429
  Transmission Date: 20140414
  Serious: Yes (Other)
  Sender: FDA-Public Use
  Company Number: None

PATIENT
  Age: 81 Year
  Sex: Male
  Weight: 90.72 kg

DRUGS (5)
  1. ZYTIGA 250MG JANSSEN BIOTECH [Suspect]
     Indication: PROSTATE CANCER
     Dosage: 1000MG QD PO
     Route: 048
     Dates: start: 20120901, end: 20130426
  2. AMLODIPINE [Concomitant]
  3. PRAVASTATIN [Concomitant]
  4. PREDNISONE [Concomitant]
  5. ASPIRIN [Concomitant]

REACTIONS (2)
  - Drug ineffective [None]
  - Prostatic specific antigen increased [None]
